FAERS Safety Report 14660294 (Version 1)
Quarter: 2018Q1

REPORT INFORMATION
  Report Type: Spontaneous
  Country: IN (occurrence: IN)
  Receive Date: 20180320
  Receipt Date: 20180320
  Transmission Date: 20180509
  Serious: Yes (Other)
  Sender: FDA-Public Use
  Company Number: IN-PFIZER INC-2018115155

PATIENT
  Age: 63 Year
  Sex: Female

DRUGS (6)
  1. FLUCOS /00780601/ [Concomitant]
     Dosage: 150 MG, 1X/DAY
  2. CYRA D [Concomitant]
     Dosage: 1 DF, 1X/DAY
  3. OFLOX OZ [Concomitant]
     Dosage: UNK
  4. AROMASIN [Suspect]
     Active Substance: EXEMESTANE
     Indication: BREAST CANCER
     Dosage: 25 MG, UNK
     Route: 048
     Dates: start: 20160630
  5. SURBEX XT [Concomitant]
     Dosage: 1 DF, 1X/DAY
  6. METFORMIN HYDROCHLORIDE. [Concomitant]
     Active Substance: METFORMIN HYDROCHLORIDE
     Dosage: 500 MG, 1X/DAY

REACTIONS (2)
  - Oestrogen receptor assay positive [Unknown]
  - HER-2 protein overexpression [Unknown]
